FAERS Safety Report 7876502-2 (Version None)
Quarter: 2011Q4

REPORT INFORMATION
  Report Type: 
  Country: None (occurrence: None)
  Receive Date: 20111031
  Receipt Date: 20111021
  Transmission Date: 20120403
  Serious: Yes (Hospitalization)
  Sender: FDA-Public Use
  Company Number: US-US-EMD SERONO, INC.-233013J08USA

PATIENT
  Sex: Female
  Weight: 54 kg

DRUGS (8)
  1. REBIF [Suspect]
     Indication: MULTIPLE SCLEROSIS
     Route: 058
     Dates: start: 20051201
  2. SOLU-MEDROL [Suspect]
     Indication: MULTIPLE SCLEROSIS
     Route: 042
  3. CELEXA [Concomitant]
     Indication: DEPRESSION
  4. REBIF [Suspect]
     Route: 058
     Dates: start: 20051212, end: 20080324
  5. REBIF [Suspect]
     Route: 058
  6. CELEXA [Concomitant]
     Indication: ANXIETY
     Dates: start: 20070901
  7. BACLOFEN [Concomitant]
     Indication: MUSCLE SPASMS
     Dates: start: 20070401
  8. AMANTADINE HCL [Concomitant]

REACTIONS (12)
  - MIGRAINE [None]
  - MULTIPLE SCLEROSIS RELAPSE [None]
  - INSOMNIA [None]
  - HYPOGLYCAEMIA [None]
  - HYPERTONIC BLADDER [None]
  - ANXIETY [None]
  - EAR DISORDER [None]
  - FEELING ABNORMAL [None]
  - ADVERSE DRUG REACTION [None]
  - SEASONAL ALLERGY [None]
  - DEPRESSION [None]
  - BLOOD POTASSIUM DECREASED [None]
